FAERS Safety Report 9666485 (Version 1)
Quarter: 2013Q4

REPORT INFORMATION
  Report Type: Spontaneous
  Country: US (occurrence: US)
  Receive Date: 20131104
  Receipt Date: 20131104
  Transmission Date: 20140711
  Serious: No
  Sender: FDA-Public Use
  Company Number: US-BIOGENIDEC-2013BI086296

PATIENT
  Age: 56 Year
  Sex: Female

DRUGS (10)
  1. TECFIDERA [Suspect]
     Indication: MULTIPLE SCLEROSIS
     Route: 048
     Dates: start: 20130628
  2. ASPIRIN LOW DOSE [Concomitant]
  3. BACLOFEN [Concomitant]
  4. CALCIUM [Concomitant]
  5. CALTRATE 600 + D [Concomitant]
  6. CLONAZEPAM [Concomitant]
  7. CYMBALTA [Concomitant]
  8. DIPHENOXYLATE ATROPINE [Concomitant]
  9. GELNIQUE [Concomitant]
  10. HYZNAR [Concomitant]

REACTIONS (1)
  - Diarrhoea [Unknown]
